FAERS Safety Report 13084393 (Version 2)
Quarter: 2017Q1

REPORT INFORMATION
  Report Type: Spontaneous
  Country: CH (occurrence: FR)
  Receive Date: 20170104
  Receipt Date: 20170208
  Transmission Date: 20170428
  Serious: Yes (Other)
  Sender: FDA-Public Use
  Company Number: CH-LPDUSPRD-20161159

PATIENT
  Age: 11 Year
  Sex: Male
  Weight: 37 kg

DRUGS (2)
  1. VENOFER [Suspect]
     Active Substance: IRON SUCROSE
     Dosage: 111 MG
     Route: 041
     Dates: start: 20161202
  2. HEMOLEVEN [Suspect]
     Active Substance: COAGULATION FACTOR XI
     Dosage: 360 IU, ONE TIME
     Route: 041
     Dates: start: 20161205

REACTIONS (2)
  - Venous thrombosis [Unknown]
  - Incorrect route of drug administration [Unknown]

NARRATIVE: CASE EVENT DATE: 20161202
